FAERS Safety Report 9501452 (Version 1)
Quarter: 2013Q3

REPORT INFORMATION
  Report Type: Report from Study
  Country: HU (occurrence: HU)
  Receive Date: 20130905
  Receipt Date: 20130905
  Transmission Date: 20140515
  Serious: Yes (Hospitalization)
  Sender: FDA-Public Use
  Company Number: HU-GLAXOSMITHKLINE-B0911540A

PATIENT
  Sex: Female

DRUGS (11)
  1. SERETIDE 50MCG/500MCG [Suspect]
     Indication: ASTHMA
     Route: 065
  2. RETAFYLLIN [Concomitant]
     Route: 065
  3. VENTOLIN [Concomitant]
     Route: 065
  4. FOSTER [Concomitant]
     Route: 065
  5. SPIRIVA [Concomitant]
     Route: 065
  6. RIVOTRIL [Concomitant]
     Route: 065
  7. BISOPROLOL FUMARATE [Concomitant]
     Dosage: 5MG TWICE PER DAY
     Route: 065
  8. MINERALS [Concomitant]
     Indication: DIURETIC THERAPY
     Route: 065
  9. FUROSEMID [Concomitant]
     Indication: DIURETIC THERAPY
     Dosage: 40MG PER DAY
     Route: 065
  10. NITROMINT SPRAY [Concomitant]
     Route: 065
  11. PAINKILLER [Concomitant]
     Route: 065

REACTIONS (3)
  - Dyspnoea [Recovered/Resolved]
  - Rash [Recovered/Resolved]
  - Drug ineffective [Recovered/Resolved]
